FAERS Safety Report 7757507-9 (Version None)
Quarter: 2011Q3

REPORT INFORMATION
  Report Type: 
  Country: None (occurrence: None)
  Receive Date: 20110916
  Receipt Date: 20110907
  Transmission Date: 20111222
  Serious: Yes (Hospitalization)
  Sender: FDA-Public Use
  Company Number: FR-BRISTOL-MYERS SQUIBB COMPANY-16044315

PATIENT
  Age: 41 Year
  Sex: Male
  Weight: 78 kg

DRUGS (7)
  1. VIRAMUNE [Suspect]
     Dosage: DOSE INCREASED TO 2TABS:12AUG2011
     Route: 048
     Dates: start: 20110803, end: 20110824
  2. EMTRICITABINE AND TENOFOVIR DISOPROXIL FUMARATE [Suspect]
     Indication: HIV INFECTION
  3. ACETAMINOPHEN [Suspect]
     Route: 048
     Dates: start: 20110821, end: 20110822
  4. RITONAVIR [Suspect]
     Indication: HIV INFECTION
  5. ACETAMINOPHEN [Suspect]
     Route: 048
     Dates: start: 20110821, end: 20110822
  6. OFLOXACIN [Suspect]
     Indication: GASTROENTERITIS
  7. ATAZANAVIR [Suspect]
     Indication: HIV INFECTION

REACTIONS (2)
  - DRUG RASH WITH EOSINOPHILIA AND SYSTEMIC SYMPTOMS [None]
  - HEPATOCELLULAR INJURY [None]
